FAERS Safety Report 5974340-9 (Version None)
Quarter: 2008Q4

REPORT INFORMATION
  Report Type: 
  Country: None (occurrence: None)
  Receive Date: 20081128
  Receipt Date: 20080520
  Transmission Date: 20090506
  Serious: Yes (Other)
  Sender: FDA-Public Use
  Company Number: DSA_31900_2008

PATIENT
  Age: 3 Year

DRUGS (1)
  1. ATIVAN [Suspect]
     Dosage: (NOT A PRESCRIBED AMOUNT)
     Dates: start: 20080501

REACTIONS (3)
  - ACCIDENTAL DRUG INTAKE BY CHILD [None]
  - CHILD ABUSE [None]
  - INTENTIONAL DRUG MISUSE [None]
